FAERS Safety Report 20711677 (Version 1)
Quarter: 2022Q2

REPORT INFORMATION
  Report Type: Spontaneous
  Country: US (occurrence: US)
  Receive Date: 20220414
  Receipt Date: 20220414
  Transmission Date: 20220721
  Serious: No
  Sender: FDA-Public Use
  Company Number: US-PFIZER INC-202101013453

PATIENT
  Age: 55 Year
  Sex: Female
  Weight: 113.4 kg

DRUGS (1)
  1. CHANTIX [Suspect]
     Active Substance: VARENICLINE TARTRATE
     Dosage: 1 MG, 2X/DAY (TAKES 2 A DAY, 1 IN THE MORNING AND 1 IN THE EVENING)
     Dates: start: 202105

REACTIONS (1)
  - Product dose omission issue [Unknown]
